FAERS Safety Report 7930272-8 (Version None)
Quarter: 2011Q4

REPORT INFORMATION
  Report Type: 
  Country: None (occurrence: None)
  Receive Date: 20111121
  Receipt Date: 20111111
  Transmission Date: 20120403
  Serious: Yes (Other)
  Sender: FDA-Public Use
  Company Number: US-US-EMD SERONO, INC.-7096008

PATIENT
  Sex: Female

DRUGS (17)
  1. NOVANTRONE [Suspect]
     Indication: SECONDARY PROGRESSIVE MULTIPLE SCLEROSIS
     Dates: start: 20010601
  2. NITROFURANTOIN [Concomitant]
  3. ATENOLOL [Concomitant]
  4. HYDROCHLOROTHIAZIDE [Concomitant]
  5. CELEBREX [Concomitant]
  6. CARDURA [Concomitant]
  7. NAMENDA [Concomitant]
     Indication: MUSCLE SPASTICITY
     Dates: start: 20040701
  8. ACTONEL [Concomitant]
  9. METHYLPREDNISOLONE [Concomitant]
     Route: 042
  10. ZANAFLEX [Concomitant]
  11. BACLOFEN [Concomitant]
  12. MEDROXYPROGESTERONE [Concomitant]
  13. NAMENDA [Concomitant]
     Indication: COGNITIVE DISORDER
  14. PROVIGIL [Concomitant]
  15. FLUOXETINE [Concomitant]
  16. LIPITOR [Concomitant]
  17. DITROPAN [Concomitant]

REACTIONS (3)
  - CARDIOMYOPATHY [None]
  - CARDIAC FAILURE [None]
  - ABNORMAL LOSS OF WEIGHT [None]
